FAERS Safety Report 4330328-5 (Version None)
Quarter: 2004Q1

REPORT INFORMATION
  Report Type: 
  Country: None (occurrence: None)
  Receive Date: 20040329
  Receipt Date: 20040316
  Transmission Date: 20041129
  Serious: Yes (Other)
  Sender: FDA-Public Use
  Company Number: 2004204001FR

PATIENT
  Sex: Female
  Weight: 2.3 kg

DRUGS (6)
  1. HEPARIN SODIUM [Suspect]
     Indication: COAGULOPATHY
  2. DEPO-MEDROL [Suspect]
     Indication: MYELITIS
     Dosage: 1 G, DAY
  3. DELTASONE [Suspect]
     Indication: MYELITIS
     Dosage: 1 MG/KG, DAILY
  4. HYDROXYCHLOROQUINE SULFATE [Suspect]
     Dosage: 200 MG, BID
  5. AZATHIOPRINE [Suspect]
     Dosage: 50 MG, BID
  6. ASPIRIN [Concomitant]

REACTIONS (3)
  - CAESAREAN SECTION [None]
  - DRUG EXPOSURE DURING PREGNANCY [None]
  - PREMATURE BABY [None]
